FAERS Safety Report 9512111 (Version 1)
Quarter: 2013Q1

REPORT INFORMATION
  Report Type: Spontaneous
  Country: US (occurrence: None)
  Receive Date: 20130305
  Receipt Date: 20130305
  Transmission Date: 20140127
  Serious: Yes (Other)
  Sender: FDA-Public Use
  Company Number: 163-21880-11123745

PATIENT
  Age: 16 Year
  Sex: Female
  Weight: 74.84 kg

DRUGS (10)
  1. REVLIMID (LENALIDOMIDE) (15 MILLIGRAM, CAPSULES) [Suspect]
     Indication: PLASMA CELL MYELOMA
     Dosage: 15 MG, X 21 DAYS, PO
     Route: 048
     Dates: start: 20100415
  2. COUMADIN (WARFARIN SODIUM) (UNKNOWN) [Concomitant]
  3. DEXAMETHASONE (DEXAMETHASONE) (UNKNOWN) [Concomitant]
  4. FOLIC ACID (FOLIC ACID) (UNKNOWN) [Concomitant]
  5. HCTZ/TRIAMT (DYAZIDE) (UNKNOWN) [Concomitant]
  6. ONDANSETRON (ONDANSETRON) (UNKNOWN) [Concomitant]
  7. POTASSIUM (POTASSIUM) (UNKNOWN) [Concomitant]
  8. PRILOSEC (OMEPRAZOLE) (UNKNOWN) [Concomitant]
  9. VELCADE (UNKNOWN) [Concomitant]
  10. VITAMIN B12 (CYANOCOBALAMIN) (UNKNOWN) [Concomitant]

REACTIONS (1)
  - Intestinal obstruction [None]
